FAERS Safety Report 16124672 (Version 1)
Quarter: 2019Q1

REPORT INFORMATION
  Report Type: Spontaneous
  Country: US (occurrence: US)
  Receive Date: 20190327
  Receipt Date: 20190327
  Transmission Date: 20190418
  Serious: Yes (Hospitalization, Other)
  Sender: FDA-Public Use
  Company Number: US-PFIZER INC-2019128451

PATIENT
  Age: 28 Year
  Sex: Male

DRUGS (1)
  1. PROMETHAZINE HCL [Suspect]
     Active Substance: PROMETHAZINE HYDROCHLORIDE
     Indication: GASTROENTERITIS
     Dosage: 25 MG, UNK
     Route: 042
     Dates: start: 20160328, end: 20160328

REACTIONS (6)
  - Depression [Unknown]
  - Compartment syndrome [Not Recovered/Not Resolved]
  - Neuralgia [Unknown]
  - Sepsis [Recovered/Resolved]
  - Rhabdomyolysis [Recovered/Resolved]
  - Anxiety [Unknown]

NARRATIVE: CASE EVENT DATE: 2016
